FAERS Safety Report 25954036 (Version 2)
Quarter: 2025Q4

REPORT INFORMATION
  Report Type: Spontaneous
  Country: US (occurrence: US)
  Receive Date: 20251023
  Receipt Date: 20251029
  Transmission Date: 20260118
  Serious: No
  Sender: ELI LILLY AND COMPANY
  Company Number: US-ELI_LILLY_AND_COMPANY-US202510015850

PATIENT
  Age: 57 Year
  Sex: Female

DRUGS (1)
  1. VERZENIO [Suspect]
     Active Substance: ABEMACICLIB
     Indication: Breast cancer
     Dosage: 150 MG, BID
     Route: 048
     Dates: start: 20251008

REACTIONS (9)
  - Neck pain [Unknown]
  - Back pain [Unknown]
  - Chest pain [Unknown]
  - Joint swelling [Unknown]
  - Lymphadenopathy [Unknown]
  - Wound [Unknown]
  - Appetite disorder [Unknown]
  - Dizziness [Unknown]
  - Arthralgia [Unknown]
